FAERS Safety Report 15294862 (Version 2)
Quarter: 2018Q3

REPORT INFORMATION
  Report Type: Spontaneous
  Country: AU (occurrence: AU)
  Receive Date: 20180820
  Receipt Date: 20180905
  Transmission Date: 20181010
  Serious: Yes (Other)
  Sender: FDA-Public Use
  Company Number: AU-BAYER-2018-152887

PATIENT
  Age: 59 Year
  Sex: Female

DRUGS (1)
  1. CLARATYNE [Suspect]
     Active Substance: LORATADINE
     Dosage: UNK

REACTIONS (4)
  - Feeling abnormal [None]
  - Arrhythmia [Recovered/Resolved]
  - Fatigue [None]
  - Palpitations [None]
